FAERS Safety Report 13754890 (Version 2)
Quarter: 2017Q4

REPORT INFORMATION
  Report Type: Spontaneous
  Country: CN (occurrence: CN)
  Receive Date: 20170714
  Receipt Date: 20171108
  Transmission Date: 20180320
  Serious: Yes (Life-Threatening, Other)
  Sender: FDA-Public Use
  Company Number: CN-SUN PHARMACEUTICAL INDUSTRIES LTD-2017R1-145411

PATIENT
  Age: 69 Year
  Sex: Female

DRUGS (2)
  1. DOXORUBICIN [Suspect]
     Active Substance: DOXORUBICIN
     Indication: MALIGNANT FIBROUS HISTIOCYTOMA
     Dosage: IN 1ST DAY
     Route: 065
  2. IFOSFAMIDE. [Suspect]
     Active Substance: IFOSFAMIDE
     Indication: MALIGNANT FIBROUS HISTIOCYTOMA
     Dosage: FROM 1ST DAY TO 4TH DAY TO 5TH DAY
     Route: 065

REACTIONS (1)
  - Bone marrow failure [Recovered/Resolved]
